FAERS Safety Report 5063860-X (Version None)
Quarter: 2006Q3

REPORT INFORMATION
  Report Type: 
  Country: None (occurrence: None)
  Receive Date: 20060703
  Receipt Date: 20060407
  Transmission Date: 20061208
  Serious: No
  Sender: FDA-Public Use
  Company Number: 2006S1003131

PATIENT
  Sex: Female
  Weight: 47.1741 kg

DRUGS (5)
  1. CLOZAPINE [Suspect]
     Indication: PSYCHOTIC DISORDER
     Dosage: SEE IMAGE
     Route: 048
     Dates: start: 20060323
  2. TOCOPHEROL CONCENTRATE CAP [Concomitant]
  3. TOLTERODINE TARTRATE [Concomitant]
  4. SERTRALINE HCL [Concomitant]
  5. RANITIDINE [Concomitant]

REACTIONS (1)
  - LEUKOPENIA [None]
